FAERS Safety Report 11406448 (Version 1)
Quarter: 2015Q3

REPORT INFORMATION
  Report Type: Spontaneous
  Country: US (occurrence: US)
  Receive Date: 20150821
  Receipt Date: 20150821
  Transmission Date: 20151125
  Serious: Yes (Hospitalization)
  Sender: FDA-Public Use
  Company Number: US-TEVA-587475USA

PATIENT
  Age: 68 Year
  Sex: Female
  Weight: 61.74 kg

DRUGS (12)
  1. SINEMET 10/100 [Concomitant]
     Dosage: 25/100
  2. ZINC [Concomitant]
     Active Substance: ZINC\ZINC CHLORIDE
  3. SINGULAIR [Concomitant]
     Active Substance: MONTELUKAST SODIUM
  4. FLAXSEED [Concomitant]
     Active Substance: FLAX SEED
  5. PARICALCITOL. [Concomitant]
     Active Substance: PARICALCITOL
  6. AZILECT [Suspect]
     Active Substance: RASAGILINE MESYLATE
     Indication: PARKINSON^S DISEASE
     Dates: start: 20150809, end: 20150812
  7. COREG [Concomitant]
     Active Substance: CARVEDILOL
  8. FERROUS SULFATE [Concomitant]
     Active Substance: FERROUS SULFATE\FERROUS SULFATE, DRIED
  9. WARFARIN [Concomitant]
     Active Substance: WARFARIN
  10. SIMVASTATIN. [Concomitant]
     Active Substance: SIMVASTATIN
  11. CITRACAL + D [Concomitant]
     Active Substance: CALCIUM CITRATE\VITAMIN D
  12. VITAMIN C [Concomitant]
     Active Substance: ASCORBIC ACID

REACTIONS (8)
  - Pancreatitis [Recovered/Resolved]
  - Hepatic enzyme increased [Unknown]
  - Headache [Recovered/Resolved]
  - Insomnia [Recovered/Resolved]
  - Weight decreased [Not Recovered/Not Resolved]
  - Dyspepsia [Recovered/Resolved]
  - Vomiting [Recovered/Resolved]
  - Blood pressure increased [Recovered/Resolved]

NARRATIVE: CASE EVENT DATE: 20150809
